FAERS Safety Report 5281674-2 (Version None)
Quarter: 2007Q1

REPORT INFORMATION
  Report Type: 
  Country: None (occurrence: None)
  Receive Date: 20070326
  Receipt Date: 20070314
  Transmission Date: 20070707
  Serious: Yes (Death, Other)
  Sender: FDA-Public Use
  Company Number: 2007SP004864

PATIENT
  Age: 63 Year
  Sex: Female

DRUGS (3)
  1. INTRON A [Suspect]
     Indication: MALIGNANT MELANOMA
     Dates: start: 20050315, end: 20060315
  2. DECARBAZINE (DECARBAZINE) [Suspect]
     Indication: MALIGNANT MELANOMA
     Dates: start: 20061023, end: 20070221
  3. PARIET (CON.) [Concomitant]

REACTIONS (2)
  - CEREBRAL HAEMORRHAGE [None]
  - HEPATIC STEATOSIS [None]
